FAERS Safety Report 7707965-0 (Version None)
Quarter: 2011Q3

REPORT INFORMATION
  Report Type: 
  Country: None (occurrence: None)
  Receive Date: 20110824
  Receipt Date: 20110610
  Transmission Date: 20111222
  Serious: Yes (Other)
  Sender: FDA-Public Use
  Company Number: PHHY2010US84596

PATIENT
  Sex: Female

DRUGS (10)
  1. SANDOSTATIN LAR [Suspect]
     Indication: DIARRHOEA
     Dosage: 30 MG, UNK
  2. SODIUM CHLORIDE [Concomitant]
     Dosage: UNK UKN, UNK
     Route: 042
  3. PERCOCET [Concomitant]
     Dosage: 5/325 MG
  4. SYNTHROID [Concomitant]
     Dosage: UNK UKN, UNK
  5. BENTYL [Concomitant]
     Dosage: 20 MG, UNK
  6. CALCITRIOL [Concomitant]
     Dosage: UNK UKN, UNK
  7. IMODIUM [Concomitant]
     Dosage: UNK UKN, UNK
  8. LYRICA [Concomitant]
     Dosage: UNK UKN, UNK
  9. TPN [Concomitant]
     Dosage: UNK UKN, UNK
  10. OMEPRAZOLE [Concomitant]
     Dosage: 20 MG, UNK

REACTIONS (16)
  - BACK PAIN [None]
  - DECREASED APPETITE [None]
  - PRODUCTIVE COUGH [None]
  - COUGH [None]
  - PYREXIA [None]
  - BLOOD CREATININE INCREASED [None]
  - DIARRHOEA [None]
  - HEADACHE [None]
  - NAUSEA [None]
  - UPPER RESPIRATORY TRACT INFECTION [None]
  - WEIGHT INCREASED [None]
  - CHILLS [None]
  - DYSURIA [None]
  - SHORT-BOWEL SYNDROME [None]
  - BACTERAEMIA [None]
  - FATIGUE [None]
